FAERS Safety Report 16837327 (Version 1)
Quarter: 2019Q3

REPORT INFORMATION
  Report Type: Spontaneous
  Country: FR (occurrence: FR)
  Receive Date: 20190923
  Receipt Date: 20190923
  Transmission Date: 20191005
  Serious: Yes (Hospitalization, Other)
  Sender: FDA-Public Use
  Company Number: FR-SUN PHARMACEUTICAL INDUSTRIES LTD-2019RR-221192

PATIENT
  Age: 42 Year
  Sex: Female

DRUGS (1)
  1. PARACETAMOL [Suspect]
     Active Substance: ACETAMINOPHEN
     Indication: PRODUCT USED FOR UNKNOWN INDICATION
     Dosage: 6 DOSAGE FORM, IN TOTAL
     Route: 048
     Dates: start: 20190108, end: 20190108

REACTIONS (10)
  - Psychomotor retardation [Recovered/Resolved]
  - Somnolence [Recovered/Resolved]
  - Suicide attempt [Unknown]
  - Hypertransaminasaemia [Recovered/Resolved]
  - Toxicity to various agents [Recovered/Resolved]
  - Gamma-glutamyltransferase increased [Recovered/Resolved]
  - Headache [Recovered/Resolved]
  - Hypotonia [Recovered/Resolved]
  - Loss of consciousness [Recovered/Resolved]
  - Malaise [Recovered/Resolved]

NARRATIVE: CASE EVENT DATE: 20190108
